FAERS Safety Report 9834121 (Version 1)
Quarter: 2014Q1

REPORT INFORMATION
  Report Type: Report from Study
  Country: US (occurrence: US)
  Receive Date: 20140122
  Receipt Date: 20140122
  Transmission Date: 20141002
  Serious: Yes (Hospitalization)
  Sender: FDA-Public Use
  Company Number: US-ROCHE-1326680

PATIENT
  Sex: Male

DRUGS (10)
  1. PULMOZYME [Suspect]
     Indication: CYSTIC FIBROSIS
     Dosage: 2.5 MG/2.5 ML, NEB
     Route: 045
  2. PROAIR (UNITED STATES) [Concomitant]
     Dosage: 2 PUFFS EVERY 4 HOURS AS NEEDED.
     Route: 065
  3. ALBUTEROL [Concomitant]
     Route: 055
  4. LACTOBACILLUS ACIDOPHILUS [Concomitant]
     Route: 048
  5. CREON [Concomitant]
     Route: 048
  6. CREON [Concomitant]
     Dosage: TAKE 4 CAPSULES WITH EACH SNACKS
     Route: 048
  7. AQUADEKS [Concomitant]
     Route: 048
  8. LANSOPRAZOLE [Concomitant]
     Route: 048
  9. TOBI [Concomitant]
     Route: 055
  10. PREDNISONE [Concomitant]
     Route: 048

REACTIONS (1)
  - Cystic fibrosis [Unknown]
